FAERS Safety Report 4685289-6 (Version None)
Quarter: 2005Q2

REPORT INFORMATION
  Report Type: 
  Country: None (occurrence: None)
  Receive Date: 20050603
  Receipt Date: 20050523
  Transmission Date: 20051028
  Serious: Yes (Other)
  Sender: FDA-Public Use
  Company Number: 2005079737

PATIENT
  Age: 70 Year

DRUGS (8)
  1. XALATAN [Suspect]
     Indication: ILL-DEFINED DISORDER
     Dosage: UNK, INTRAOCULAR
     Route: 031
  2. RESCULA  ^FUJISAWA^ (UNOPROSTONE ISOPROPYL ESTER) [Concomitant]
  3. FOIPAN (CAMOSTAT MESILATE) [Concomitant]
  4. HARNAL (TAMSULOSIN HYDROCHLORIDE) [Concomitant]
  5. EVIPROSTAT (CHIMAPHILA  UMBELLATA, EQUISETUM ARVENSE, MANGANESE CHLORI [Concomitant]
  6. METHYCOBAL (MECOBALAMIN) [Concomitant]
  7. AZULENE [Concomitant]
  8. NERIPROCT (DIFLUCORTOLONE VALERATE, LIDOCAINE) [Concomitant]

REACTIONS (2)
  - BLINDNESS UNILATERAL [None]
  - CATARACT [None]
